FAERS Safety Report 19376713 (Version 4)
Quarter: 2021Q4

REPORT INFORMATION
  Report Type: Report from Study
  Country: US (occurrence: US)
  Receive Date: 20210604
  Receipt Date: 20211022
  Transmission Date: 20220303
  Serious: Yes (Hospitalization, Other)
  Sender: FDA-Public Use
  Company Number: US-GLAXOSMITHKLINE-US2021AMR113232

PATIENT
  Sex: Male

DRUGS (1)
  1. BELANTAMAB MAFODOTIN [Suspect]
     Active Substance: BELANTAMAB MAFODOTIN
     Indication: Product used for unknown indication
     Dosage: UNK
     Route: 042
     Dates: start: 20210320

REACTIONS (11)
  - Fall [Unknown]
  - Multiple fractures [Unknown]
  - Keratopathy [Unknown]
  - Visual acuity tests abnormal [Unknown]
  - Visual acuity reduced [Unknown]
  - Night blindness [Unknown]
  - Photophobia [Unknown]
  - Dry eye [Unknown]
  - Sensation of foreign body [Unknown]
  - Burning sensation [Unknown]
  - Lacrimation increased [Unknown]
